FAERS Safety Report 10277916 (Version 1)
Quarter: 2014Q3

REPORT INFORMATION
  Report Type: Spontaneous
  Country: DE (occurrence: DE)
  Receive Date: 20140704
  Receipt Date: 20140704
  Transmission Date: 20150326
  Serious: Yes (Other)
  Sender: FDA-Public Use
  Company Number: DE-BRISTOL-MYERS SQUIBB COMPANY-21101373

PATIENT
  Age: 80 Year
  Sex: Male
  Weight: 100 kg

DRUGS (2)
  1. BYDUREON [Suspect]
     Active Substance: EXENATIDE
     Indication: TYPE 2 DIABETES MELLITUS
     Route: 058
     Dates: start: 2014
  2. SITAGLIPTIN PHOSPHATE + METFORMIN HCL [Concomitant]
     Active Substance: METFORMIN\SITAGLIPTIN

REACTIONS (1)
  - Hearing impaired [Unknown]

NARRATIVE: CASE EVENT DATE: 2014
